FAERS Safety Report 8251043-1 (Version None)
Quarter: 2012Q2

REPORT INFORMATION
  Report Type: 
  Country: None (occurrence: None)
  Receive Date: 20120402
  Receipt Date: 20120329
  Transmission Date: 20120825
  Serious: Yes (Life-Threatening, Hospitalization, Other)
  Sender: FDA-Public Use
  Company Number: JP-B.I. PHARMACEUTICALS,INC./RIDGEFIELD-2012-BP-05097NB

PATIENT
  Age: 78 Year
  Sex: Female

DRUGS (4)
  1. VITADAN [Concomitant]
     Route: 065
  2. PRADAXA [Suspect]
     Indication: ANTICOAGULANT THERAPY
     Dosage: 220 MG
     Route: 048
     Dates: start: 20110318
  3. MICARDIS [Concomitant]
     Indication: HYPERTENSION
     Dosage: 40 MG
     Route: 048
  4. LIVALO [Concomitant]
     Route: 065

REACTIONS (3)
  - VOMITING [None]
  - CEREBELLAR TUMOUR [None]
  - HAEMORRHAGE INTRACRANIAL [None]
